FAERS Safety Report 11234100 (Version 1)
Quarter: 2015Q3

REPORT INFORMATION
  Report Type: Spontaneous
  Country: US (occurrence: US)
  Receive Date: 20150702
  Receipt Date: 20150702
  Transmission Date: 20151125
  Serious: Yes (Other)
  Sender: FDA-Public Use
  Company Number: US-PFIZER INC-2015214559

PATIENT
  Age: 58 Year
  Sex: Female
  Weight: 104 kg

DRUGS (1)
  1. LYRICA [Suspect]
     Active Substance: PREGABALIN
     Indication: ALLERGIC GRANULOMATOUS ANGIITIS
     Dosage: 150 MG, 3X/DAY
     Route: 048
     Dates: start: 2009

REACTIONS (5)
  - Fall [Unknown]
  - Drug dependence [Unknown]
  - Teeth brittle [Not Recovered/Not Resolved]
  - Somnolence [Not Recovered/Not Resolved]
  - Product use issue [Not Recovered/Not Resolved]

NARRATIVE: CASE EVENT DATE: 2009
